FAERS Safety Report 11727740 (Version 1)
Quarter: 2015Q4

REPORT INFORMATION
  Report Type: Report from Study
  Country: US (occurrence: US)
  Receive Date: 20151112
  Receipt Date: 20151112
  Transmission Date: 20160304
  Serious: Yes (Hospitalization)
  Sender: FDA-Public Use
  Company Number: US-ACTELION-A-NJ2015-126866

PATIENT
  Age: 78 Year
  Sex: Male

DRUGS (8)
  1. MECHLORETHAMINE [Suspect]
     Active Substance: MECHLORETHAMINE
     Indication: MYCOSIS FUNGOIDES
     Dosage: UNK
     Route: 061
     Dates: start: 20141208
  2. VITAMIN D3 [Concomitant]
     Active Substance: CHOLECALCIFEROL
  3. SILVADENE [Concomitant]
     Active Substance: SILVER SULFADIAZINE
  4. TRIAMCINOLONE [Concomitant]
     Active Substance: TRIAMCINOLONE
  5. METOPROLOL [Concomitant]
     Active Substance: METOPROLOL
  6. TARGRETIN [Concomitant]
     Active Substance: BEXAROTENE
  7. NIASPAN [Concomitant]
     Active Substance: NIACIN
  8. MAGNESIUM [Concomitant]
     Active Substance: MAGNESIUM

REACTIONS (2)
  - Fall [Unknown]
  - Hip fracture [Unknown]
